FAERS Safety Report 25682721 (Version 1)
Quarter: 2025Q3

REPORT INFORMATION
  Report Type: Spontaneous
  Country: US (occurrence: None)
  Receive Date: 20250814
  Receipt Date: 20250814
  Transmission Date: 20251020
  Serious: No
  Sender: FDA-CTU
  Company Number: None

PATIENT
  Age: 30 Year
  Sex: Male
  Weight: 57.15 kg

DRUGS (1)
  1. HALOPERIDOL [Suspect]
     Active Substance: HALOPERIDOL
     Indication: Schizoaffective disorder
     Dosage: FREQUENCY : DAILY;?
     Route: 048
     Dates: start: 20250314, end: 20250725

REACTIONS (2)
  - Therapy change [None]
  - Genital paraesthesia [None]

NARRATIVE: CASE EVENT DATE: 20250717
